FAERS Safety Report 6735376-3 (Version None)
Quarter: 2010Q2

REPORT INFORMATION
  Report Type: 
  Country: None (occurrence: None)
  Receive Date: 20100521
  Receipt Date: 20100420
  Transmission Date: 20101027
  Serious: No
  Sender: FDA-Public Use
  Company Number: US-BAYER-201014508BCC

PATIENT
  Age: 61 Year
  Sex: Male
  Weight: 63 kg

DRUGS (6)
  1. ALEVE (CAPLET) [Suspect]
     Indication: HEADACHE
     Dosage: TOTAL DAILY DOSE: 440 MG  UNIT DOSE: 220 MG
     Route: 048
     Dates: start: 20090101
  2. GLUCOSAMINE [Concomitant]
  3. FLOW MAX [Concomitant]
  4. LIPITOR [Concomitant]
  5. D AND G HEALTH VITAMIN [Concomitant]
  6. FISH OIL [Concomitant]

REACTIONS (1)
  - BLOOD POTASSIUM INCREASED [None]
